FAERS Safety Report 6931153-9 (Version None)
Quarter: 2010Q3

REPORT INFORMATION
  Report Type: 
  Country: None (occurrence: None)
  Receive Date: 20100818
  Receipt Date: 20100811
  Transmission Date: 20110219
  Serious: Yes (Other)
  Sender: FDA-Public Use
  Company Number: US-GILEAD-2010-0030475

PATIENT
  Age: 67 Year
  Sex: Female
  Weight: 54.934 kg

DRUGS (10)
  1. LETAIRIS [Suspect]
     Indication: PULMONARY ARTERIAL HYPERTENSION
     Route: 048
     Dates: start: 20070725, end: 20100607
  2. REVATIO [Concomitant]
  3. SPIRIVA [Concomitant]
  4. PULMICORT [Concomitant]
  5. THEOPHYLLINE-SR [Concomitant]
  6. XOPENEX [Concomitant]
  7. MULTI-VITAMIN [Concomitant]
  8. ACETAMINOPHEN [Concomitant]
  9. CALCIUM [Concomitant]
  10. PEPCID [Concomitant]

REACTIONS (1)
  - LUNG TRANSPLANT [None]
